FAERS Safety Report 8860585 (Version 1)
Quarter: 2012Q4

REPORT INFORMATION
  Report Type: Report from Study
  Country: US (occurrence: US)
  Receive Date: 20121025
  Receipt Date: 20121025
  Transmission Date: 20130627
  Serious: Yes (Other)
  Sender: FDA-Public Use
  Company Number: US-ABBOTT-12P-163-0997451-00

PATIENT
  Age: 50 Year
  Sex: Female

DRUGS (7)
  1. HUMIRA [Suspect]
     Indication: PSORIATIC ARTHROPATHY
     Dates: start: 2011, end: 201204
  2. HUMIRA [Suspect]
     Dates: start: 201207
  3. IMMUNOGLOBULIN [Concomitant]
     Indication: AUTOIMMUNE DISORDER
  4. KEPPRA [Concomitant]
     Indication: CONVULSION
  5. VITAMINS [Concomitant]
     Indication: PRODUCT USED FOR UNKNOWN INDICATION
  6. NAPROSYN [Concomitant]
     Indication: PAIN
  7. MOTRIN [Concomitant]
     Indication: PAIN

REACTIONS (4)
  - Convulsion [Not Recovered/Not Resolved]
  - Sleep apnoea syndrome [Unknown]
  - Hypothyroidism [Unknown]
  - Mobility decreased [Unknown]
